FAERS Safety Report 6913873-5 (Version None)
Quarter: 2010Q3

REPORT INFORMATION
  Report Type: 
  Country: None (occurrence: None)
  Receive Date: 20100809
  Receipt Date: 20100804
  Transmission Date: 20110219
  Serious: Yes (Other)
  Sender: FDA-Public Use
  Company Number: BR-ROCHE-719287

PATIENT
  Age: 22 Year
  Sex: Female

DRUGS (1)
  1. ROACUTAN [Suspect]
     Indication: PRODUCT USED FOR UNKNOWN INDICATION
     Route: 065
     Dates: start: 20100301

REACTIONS (4)
  - AGGRESSION [None]
  - NERVOUS SYSTEM DISORDER [None]
  - PHYSICAL ASSAULT [None]
  - SUICIDE ATTEMPT [None]
